FAERS Safety Report 9143689 (Version 4)
Quarter: 2013Q3

REPORT INFORMATION
  Report Type: Report from Study
  Country: KR (occurrence: KR)
  Receive Date: 20130306
  Receipt Date: 20130918
  Transmission Date: 20140515
  Serious: Yes (Death, Other)
  Sender: FDA-Public Use
  Company Number: KR-009507513-1303KOR002123

PATIENT
  Age: 33 Year
  Sex: Male
  Weight: 82.7 kg

DRUGS (14)
  1. ASENAPINE MALEATE-SCHIZOPHRENIA [Suspect]
     Indication: SCHIZOPHRENIA
     Dosage: 10 MG, 1T BID
     Route: 060
     Dates: start: 20120702, end: 20130225
  2. ASENAPINE MALEATE-SCHIZOPHRENIA [Suspect]
     Dosage: UNK
     Dates: start: 20120521, end: 20120702
  3. LORAZEPAM [Concomitant]
     Indication: INSOMNIA
     Dosage: 2 MG,QD
     Route: 048
     Dates: start: 20130109, end: 20130225
  4. LORAZEPAM [Concomitant]
     Indication: EXTRAPYRAMIDAL DISORDER
     Dosage: 1 MG QD
     Route: 048
     Dates: start: 20121030, end: 20121220
  5. LORAZEPAM [Concomitant]
     Dosage: 1.5 MG, BID
     Route: 048
     Dates: start: 20121231, end: 20130102
  6. LORAZEPAM [Concomitant]
     Dosage: 2 UNK, UNK
     Route: 030
     Dates: start: 20130103, end: 20130108
  7. LORAZEPAM [Concomitant]
     Dosage: 0.75 MG, QD
     Route: 048
     Dates: start: 20120522, end: 20120909
  8. LORAZEPAM [Concomitant]
     Dosage: 0.125-1MG
     Route: 048
     Dates: start: 20120910, end: 20121230
  9. BENZTROPINE MESYLATE [Concomitant]
     Indication: EXTRAPYRAMIDAL DISORDER
     Dosage: 1 MG,QD
     Route: 048
     Dates: start: 20121024, end: 20130225
  10. BENZTROPINE MESYLATE [Concomitant]
     Dosage: 2 UNK, QD
     Route: 048
     Dates: start: 20120718, end: 20121023
  11. BENZTROPINE MESYLATE [Concomitant]
     Dosage: 1 MG, QD
     Route: 048
     Dates: start: 20121024, end: 20130225
  12. MAGMIL [Concomitant]
     Indication: CONSTIPATION
     Dosage: 1000 MG, QD
     Route: 048
     Dates: start: 20121231, end: 20130101
  13. MAGMIL [Concomitant]
     Dosage: 1000 MG, QD
     Route: 048
     Dates: start: 20130110, end: 20130224
  14. DOXYLAMINE SUCCINATE [Concomitant]
     Indication: INSOMNIA
     Dosage: 50 MG, QD
     Route: 048
     Dates: start: 20121226, end: 20121230

REACTIONS (2)
  - Completed suicide [Fatal]
  - Depressed mood [Fatal]
